FAERS Safety Report 6399965-0 (Version None)
Quarter: 2009Q4

REPORT INFORMATION
  Report Type: 
  Country: None (occurrence: None)
  Receive Date: 20091008
  Receipt Date: 20091008
  Transmission Date: 20100525
  Serious: Yes (Hospitalization)
  Sender: FDA-Public Use
  Company Number: None

PATIENT
  Sex: Female

DRUGS (1)
  1. VANCOMYCIN [Suspect]
     Indication: CELLULITIS
     Dosage: 1.5G Q12H IV BOLUS
     Route: 040
     Dates: start: 20081104, end: 20081107

REACTIONS (1)
  - RENAL FAILURE ACUTE [None]
